FAERS Safety Report 5272710-8 (Version None)
Quarter: 2007Q1

REPORT INFORMATION
  Report Type: 
  Country: None (occurrence: None)
  Receive Date: 20070316
  Receipt Date: 20070308
  Transmission Date: 20070707
  Serious: Yes (Other)
  Sender: FDA-Public Use
  Company Number: 2007BL000748

PATIENT
  Age: 36 Year
  Sex: Male

DRUGS (2)
  1. DEXAMETHASONE [Suspect]
  2. REMICADE [Suspect]
     Indication: ANKYLOSING SPONDYLITIS
     Dosage: 5 MILLIGRAMS PER KILLOGRAM; Q6WEEK; INTRAVENOUS
     Route: 042

REACTIONS (1)
  - BLOOD BILIRUBIN INCREASED [None]
